FAERS Safety Report 9408564 (Version 2)
Quarter: 2013Q4

REPORT INFORMATION
  Report Type: Spontaneous
  Country: US (occurrence: US)
  Receive Date: 20130718
  Receipt Date: 20131010
  Transmission Date: 20140711
  Serious: No
  Sender: FDA-Public Use
  Company Number: US-ASTELLAS-2013US006080

PATIENT
  Sex: Female

DRUGS (3)
  1. VESICARE [Suspect]
     Indication: STRESS URINARY INCONTINENCE
     Dosage: 10 MG, UID/QD
     Route: 048
     Dates: start: 20130501
  2. VESICARE [Suspect]
     Indication: HYPERTONIC BLADDER
  3. VESICARE [Suspect]
     Indication: MIXED INCONTINENCE

REACTIONS (1)
  - Off label use [Unknown]
